FAERS Safety Report 12823780 (Version 2)
Quarter: 2016Q4

REPORT INFORMATION
  Report Type: Spontaneous
  Country: BR (occurrence: BR)
  Receive Date: 20161006
  Receipt Date: 20161018
  Transmission Date: 20170207
  Serious: Yes (Other)
  Sender: FDA-Public Use
  Company Number: BR-GALDERMA-BR16006636

PATIENT
  Age: 34 Year
  Sex: Female
  Weight: 68 kg

DRUGS (3)
  1. NEUTRAL SOAP (NOS) [Concomitant]
     Route: 003
  2. EPIDUO [Suspect]
     Active Substance: ADAPALENE\BENZOYL PEROXIDE
     Indication: ACNE
     Route: 003
     Dates: start: 20160922, end: 20160922
  3. SUNBLOCKER SPF 70 [Concomitant]
     Indication: PROPHYLAXIS AGAINST SOLAR RADIATION
     Route: 003

REACTIONS (13)
  - Hypersensitivity [Recovered/Resolved]
  - Rash pustular [Recovered/Resolved]
  - Application site erythema [Recovered/Resolved]
  - Application site burn [Recovered/Resolved]
  - Activities of daily living impaired [Recovered/Resolved]
  - Rash [Recovered/Resolved]
  - Application site swelling [Recovered/Resolved]
  - Dry skin [Recovered/Resolved]
  - Skin induration [Recovered/Resolved]
  - Blister [Recovered/Resolved]
  - Pyrexia [Recovered/Resolved]
  - Application site pruritus [Recovered/Resolved]
  - Skin exfoliation [Recovered/Resolved]

NARRATIVE: CASE EVENT DATE: 20160923
